FAERS Safety Report 9144320 (Version 1)
Quarter: 2013Q1

REPORT INFORMATION
  Report Type: Report from Study
  Country: US (occurrence: US)
  Receive Date: 20130306
  Receipt Date: 20130306
  Transmission Date: 20140127
  Serious: Yes (Other)
  Sender: FDA-Public Use
  Company Number: US-ROCHE-1197589

PATIENT
  Age: 44 Year
  Sex: Female

DRUGS (4)
  1. PACLITAXEL [Suspect]
     Indication: BREAST CANCER
     Route: 042
     Dates: start: 20091207, end: 20100111
  2. PACLITAXEL [Suspect]
     Route: 042
     Dates: start: 20100118, end: 20100222
  3. TRASTUZUMAB [Suspect]
     Indication: BREAST CANCER
     Dosage: LOADING DOSE OF 4 MG/KG
     Route: 042
     Dates: start: 20091207
  4. TRASTUZUMAB [Suspect]
     Route: 042
     Dates: start: 20091214, end: 20100222

REACTIONS (1)
  - Neuropathy peripheral [Recovering/Resolving]
